FAERS Safety Report 7904935-4 (Version None)
Quarter: 2011Q4

REPORT INFORMATION
  Report Type: 
  Country: None (occurrence: None)
  Receive Date: 20111109
  Receipt Date: 20111101
  Transmission Date: 20120403
  Serious: Yes (Other)
  Sender: FDA-Public Use
  Company Number: PHHY2011BR87990

PATIENT
  Sex: Male

DRUGS (3)
  1. EXFORGE HCT [Suspect]
     Indication: HYPERTENSION
     Dosage: 1 DF, QD (160/5/12.5 MG)
     Route: 048
  2. VYTORIN [Concomitant]
     Indication: BLOOD CHOLESTEROL INCREASED
     Dosage: 1 DF, (10/20 MG ONE TABLET DAILY)
  3. PLENACOR (ATENOLOL) [Concomitant]
     Indication: HYPERTENSION
     Dosage: 25 MG, (ONE TABLET DAILY)

REACTIONS (1)
  - CHOLELITHIASIS [None]
